FAERS Safety Report 7390988-1 (Version None)
Quarter: 2011Q2

REPORT INFORMATION
  Report Type: 
  Country: None (occurrence: None)
  Receive Date: 20110404
  Receipt Date: 20110330
  Transmission Date: 20111010
  Serious: No
  Sender: FDA-Public Use
  Company Number: US-PFIZER INC-2011071778

PATIENT
  Sex: Female
  Weight: 113 kg

DRUGS (2)
  1. ACETAMINOPHEN, ASPIRIN, AND CODEINE PHOSPHATE [Suspect]
     Indication: HEADACHE
     Dosage: UNK
  2. PRISTIQ [Suspect]
     Dosage: 50 MG, UNK
     Route: 048
     Dates: start: 20110301

REACTIONS (1)
  - CONTUSION [None]
